FAERS Safety Report 10922894 (Version 5)
Quarter: 2015Q2

REPORT INFORMATION
  Report Type: Spontaneous
  Country: US (occurrence: US)
  Receive Date: 20150317
  Receipt Date: 20150625
  Transmission Date: 20150821
  Serious: Yes (Hospitalization)
  Sender: FDA-Public Use
  Company Number: US-ACTELION-A-US2015-114417

PATIENT
  Age: 61 Year
  Sex: Female

DRUGS (3)
  1. VELETRI [Suspect]
     Active Substance: EPOPROSTENOL
     Indication: PULMONARY HYPERTENSION
     Dosage: 18 NG/KG, PER MIN
     Route: 042
     Dates: start: 20141209
  2. COUMADIN [Concomitant]
     Active Substance: WARFARIN SODIUM
  3. VELETRI [Suspect]
     Active Substance: EPOPROSTENOL
     Dosage: 28 NG/KG, PER MIN
     Route: 042

REACTIONS (10)
  - Fluid retention [Unknown]
  - Pain in jaw [Unknown]
  - Hepatic infection [Unknown]
  - Nausea [Unknown]
  - Chest pain [Unknown]
  - Oedema [Unknown]
  - Oxygen saturation decreased [Unknown]
  - Kidney infection [Unknown]
  - Pneumonia [Unknown]
  - Pericardial effusion [Unknown]
